FAERS Safety Report 6507017-1 (Version None)
Quarter: 2009Q4

REPORT INFORMATION
  Report Type: 
  Country: None (occurrence: None)
  Receive Date: 20091221
  Receipt Date: 20091216
  Transmission Date: 20100525
  Serious: Yes (Death)
  Sender: FDA-Public Use
  Company Number: VE-ELI_LILLY_AND_COMPANY-VE200911004081

PATIENT
  Age: 64 Year
  Sex: Male
  Weight: 103 kg

DRUGS (2)
  1. BYETTA [Suspect]
     Indication: TYPE 2 DIABETES MELLITUS
     Dosage: 5 UG, 2/D
     Route: 065
     Dates: start: 20091104, end: 20091101
  2. ADACAI [Concomitant]
     Indication: HYPERCHOLESTEROLAEMIA

REACTIONS (3)
  - ASTHENIA [None]
  - FEELING COLD [None]
  - MYOCARDIAL INFARCTION [None]
